FAERS Safety Report 8924113 (Version 1)
Quarter: 2012Q4

REPORT INFORMATION
  Report Type: Spontaneous
  Country: GB (occurrence: None)
  Receive Date: 20121116
  Receipt Date: 20121116
  Transmission Date: 20130627
  Serious: Yes (Hospitalization)
  Sender: FDA-Public Use
  Company Number: 141720

PATIENT
  Age: 29 Year
  Sex: Male

DRUGS (1)
  1. ACETYLCYSTEINE [Suspect]
     Indication: OVERDOSE
     Dosage: IV acetylcysteine 150 mg/kg over 15 minutes
     Route: 042

REACTIONS (2)
  - Anaphylactic reaction [None]
  - Hypotension [None]
